FAERS Safety Report 5768852-0 (Version None)
Quarter: 2008Q2

REPORT INFORMATION
  Report Type: 
  Country: None (occurrence: None)
  Receive Date: 20080612
  Receipt Date: 20080312
  Transmission Date: 20081010
  Serious: No
  Sender: FDA-Public Use
  Company Number: US-ABBOTT-08P-163-0442366-00

PATIENT
  Sex: Female
  Weight: 57.658 kg

DRUGS (3)
  1. HUMIRA [Suspect]
     Indication: RHEUMATOID ARTHRITIS
     Route: 058
     Dates: start: 20040301, end: 20070301
  2. HUMIRA [Suspect]
     Route: 058
     Dates: start: 20070301, end: 20080305
  3. EZOXAC [Concomitant]
     Indication: DRY EYE
     Route: 061

REACTIONS (3)
  - LUNG NEOPLASM [None]
  - OEDEMA PERIPHERAL [None]
  - PAIN IN EXTREMITY [None]
